FAERS Safety Report 16239259 (Version 4)
Quarter: 2020Q2

REPORT INFORMATION
  Report Type: Report from Study
  Country: US (occurrence: US)
  Receive Date: 20190425
  Receipt Date: 20200512
  Transmission Date: 20200713
  Serious: Yes (Other)
  Sender: FDA-Public Use
  Company Number: US-BIOVITRUM-2019US0807

PATIENT
  Age: 12 Year
  Sex: Male
  Weight: 18 kg

DRUGS (8)
  1. AMPICILLIN [Concomitant]
     Active Substance: AMPICILLIN
  2. GENTAMICIN. [Concomitant]
     Active Substance: GENTAMICIN
  3. DEXTROPROPOXYPHENE [Concomitant]
     Active Substance: PROPOXYPHENE HYDROCHLORIDE
  4. VANCOMYCIN [Concomitant]
     Active Substance: VANCOMYCIN
  5. INTERFERON GAMMA NOS [Concomitant]
     Active Substance: INTERFERON GAMMA
  6. MOTRIN [Concomitant]
     Active Substance: IBUPROFEN
  7. KINERET [Suspect]
     Active Substance: ANAKINRA
     Indication: DEFICIENCY OF THE INTERLEUKIN-1 RECEPTOR ANTAGONIST
     Dosage: 5.7 MG/KG/DAY
     Route: 058
     Dates: start: 20080730
  8. CODEINE [Concomitant]
     Active Substance: CODEINE

REACTIONS (3)
  - Aortic aneurysm [Not Recovered/Not Resolved]
  - Aortic dilatation [Not Recovered/Not Resolved]
  - Carotid artery disease [Not Recovered/Not Resolved]

NARRATIVE: CASE EVENT DATE: 20110701
